FAERS Safety Report 12203172 (Version 1)
Quarter: 2016Q1

REPORT INFORMATION
  Report Type: Spontaneous
  Country: US (occurrence: None)
  Receive Date: 20160321
  Receipt Date: 20160321
  Transmission Date: 20160526
  Serious: No
  Sender: FDA-Public Use
  Company Number: None

PATIENT
  Age: 44 Year
  Sex: Male

DRUGS (3)
  1. COLD EEZE LOZ [Concomitant]
  2. CELEBREX [Concomitant]
     Active Substance: CELECOXIB
  3. CAPECITABINE 500MG TAB [Suspect]
     Active Substance: CAPECITABINE
     Indication: COLON CANCER
     Dosage: 1000 MG BID Q1-21 OF 28 DAYS ORAL
     Route: 048
     Dates: start: 20140520

REACTIONS (2)
  - Skin exfoliation [None]
  - Memory impairment [None]

NARRATIVE: CASE EVENT DATE: 201601
